FAERS Safety Report 8686500 (Version 2)
Quarter: 2013Q1

REPORT INFORMATION
  Report Type: Spontaneous
  Country: US (occurrence: US)
  Receive Date: 20120726
  Receipt Date: 20130214
  Transmission Date: 20140127
  Serious: Yes (Other)
  Sender: FDA-Public Use
  Company Number: US-ASTRAZENECA-2011SE12693

PATIENT
  Age: 19068 Day
  Sex: 0

DRUGS (15)
  1. ZOLPIDEM TARTRATE [Concomitant]
     Dates: start: 20071114
  2. NAMENDA [Concomitant]
     Dates: start: 20080107
  3. RAZADYNE ER [Concomitant]
     Dates: start: 20080209
  4. PRECOSE [Concomitant]
     Dates: start: 20071102
  5. PREVACID [Concomitant]
     Dates: start: 20071126
  6. SEROQUEL [Suspect]
     Route: 048
     Dates: start: 20071112
  7. SEROQUEL [Suspect]
     Route: 048
     Dates: start: 20080404
  8. ALPRAZOLAM [Concomitant]
     Route: 048
     Dates: start: 20071120
  9. ALPRAZOLAM [Concomitant]
     Route: 048
     Dates: start: 20080404
  10. FLUOXETINE [Concomitant]
     Route: 048
     Dates: start: 20080304
  11. MELOXICAM [Concomitant]
     Route: 048
     Dates: start: 20080404
  12. HYDROCO/APAP [Concomitant]
     Dosage: 7.5 -325 MG
     Dates: start: 20071025
  13. OMEPRAZOLE [Concomitant]
     Dates: start: 20071227
  14. LYRICA [Concomitant]
     Dates: start: 20080314
  15. CYCLOBENZAPR [Concomitant]
     Dates: start: 20071102

REACTIONS (4)
  - Pancreatitis [Unknown]
  - Diabetic coma [Unknown]
  - Type 2 diabetes mellitus [Unknown]
  - Hypoglycaemia [Unknown]
